FAERS Safety Report 9844834 (Version 2)
Quarter: 2014Q2

REPORT INFORMATION
  Report Type: Report from Study
  Country: SK (occurrence: SK)
  Receive Date: 20140127
  Receipt Date: 20140527
  Transmission Date: 20141212
  Serious: Yes (Death, Hospitalization, Other)
  Sender: FDA-Public Use
  Company Number: SK-ROCHE-1337406

PATIENT
  Age: 75 Year
  Sex: Male
  Weight: 84 kg

DRUGS (7)
  1. RANIBIZUMAB [Suspect]
     Indication: AGE-RELATED MACULAR DEGENERATION
     Route: 050
     Dates: start: 20121120
  2. RANIBIZUMAB [Suspect]
     Route: 050
     Dates: start: 20121217, end: 20121217
  3. CORVATON [Concomitant]
     Route: 065
     Dates: start: 2008
  4. CORVATON [Concomitant]
     Route: 065
     Dates: start: 20130606
  5. CORVATON [Concomitant]
     Route: 065
     Dates: start: 2009
  6. AGEN (SLOVAKIA) [Concomitant]
     Route: 065
     Dates: start: 2007
  7. AGEN (SLOVAKIA) [Concomitant]
     Route: 065
     Dates: start: 20130606

REACTIONS (5)
  - Death [Fatal]
  - Dyspnoea [Not Recovered/Not Resolved]
  - Bronchopneumonia [Not Recovered/Not Resolved]
  - Cardiac failure [Not Recovered/Not Resolved]
  - Angina pectoris [Unknown]
